FAERS Safety Report 5714790-9 (Version None)
Quarter: 2008Q2

REPORT INFORMATION
  Report Type: 
  Country: None (occurrence: None)
  Receive Date: 20080423
  Receipt Date: 20070320
  Transmission Date: 20081010
  Serious: Yes (Death, Other)
  Sender: FDA-Public Use
  Company Number: US-ROCHE-488730

PATIENT
  Sex: Female

DRUGS (1)
  1. CAPECITABINE [Suspect]
     Indication: BREAST CANCER
     Dosage: 2 DIVIDED DOSES ON DAYS 1 THROUGH 14 OF A 21-DAY CYCLE.
     Route: 065

REACTIONS (2)
  - DEATH [None]
  - SMALL INTESTINAL OBSTRUCTION [None]
